FAERS Safety Report 8008051-5 (Version None)
Quarter: 2011Q4

REPORT INFORMATION
  Report Type: 
  Country: None (occurrence: None)
  Receive Date: 20111227
  Receipt Date: 20111220
  Transmission Date: 20120403
  Serious: Yes (Hospitalization)
  Sender: FDA-Public Use
  Company Number: PHHO2011DE16927

PATIENT
  Sex: Female
  Weight: 69 kg

DRUGS (4)
  1. LEVOTHYROXINE SODIUM [Concomitant]
     Indication: HYPERTHYROIDISM
     Dosage: 75 UG
     Dates: start: 20050101
  2. ZOPICLON [Concomitant]
     Indication: SLEEP DISORDER
     Dosage: 10 MG
     Dates: start: 20030301
  3. FTY [Suspect]
     Dosage: 0.5 MG, QD
     Route: 048
     Dates: start: 20110804, end: 20110916
  4. LYRICA [Concomitant]
     Indication: NEURALGIA
     Dosage: 450 MG
     Dates: start: 20091001

REACTIONS (3)
  - DIARRHOEA [None]
  - ABDOMINAL PAIN UPPER [None]
  - DECREASED APPETITE [None]
